FAERS Safety Report 24842252 (Version 2)
Quarter: 2025Q1

REPORT INFORMATION
  Report Type: Spontaneous
  Country: US (occurrence: US)
  Receive Date: 20250115
  Receipt Date: 20250207
  Transmission Date: 20250409
  Serious: No
  Sender: SANOFI AVENTIS
  Company Number: US-SA-2025SA011399

PATIENT
  Age: 42 Year
  Sex: Female

DRUGS (38)
  1. DUPIXENT [Suspect]
     Active Substance: DUPILUMAB
     Indication: Chronic sinusitis
     Route: 058
     Dates: start: 20240717, end: 20240717
  2. DUPIXENT [Suspect]
     Active Substance: DUPILUMAB
     Indication: Asthma
     Dosage: 300 MG, QOW
     Route: 058
     Dates: start: 2024
  3. DUPIXENT [Suspect]
     Active Substance: DUPILUMAB
     Dosage: 300 MG, QOW
     Route: 058
  4. AZELASTINE HYDROCHLORIDE [Concomitant]
     Active Substance: AZELASTINE HYDROCHLORIDE
  5. BUDESONIDE [Concomitant]
     Active Substance: BUDESONIDE
  6. BUPRENORPHINE [Concomitant]
     Active Substance: BUPRENORPHINE
  7. FLUCONAZOLE [Concomitant]
     Active Substance: FLUCONAZOLE
  8. FLUTICASONE [Concomitant]
     Active Substance: FLUTICASONE
  9. LORATADINE [Concomitant]
     Active Substance: LORATADINE
  10. ONDANSETRON [Concomitant]
     Active Substance: ONDANSETRON
  11. ONDANSETRON [Concomitant]
     Active Substance: ONDANSETRON
  12. PREDNISONE [Concomitant]
     Active Substance: PREDNISONE
  13. VITAMINS [Concomitant]
     Active Substance: VITAMINS
  14. RABEPRAZOLE [Concomitant]
     Active Substance: RABEPRAZOLE
  15. STELARA [Concomitant]
     Active Substance: USTEKINUMAB
  16. VALACYCLOVIR [Concomitant]
     Active Substance: VALACYCLOVIR HYDROCHLORIDE
  17. CLOBETASOL [Concomitant]
     Active Substance: CLOBETASOL
  18. ALBUTEROL SULFATE [Concomitant]
     Active Substance: ALBUTEROL SULFATE
  19. CICLOPIROX [Concomitant]
     Active Substance: CICLOPIROX
  20. SUMATRIPTAN [Concomitant]
     Active Substance: SUMATRIPTAN
  21. PREGABALIN [Concomitant]
     Active Substance: PREGABALIN
  22. FLUCONAZOLE [Concomitant]
     Active Substance: FLUCONAZOLE
  23. XOLAIR [Concomitant]
     Active Substance: OMALIZUMAB
  24. SKYRIZI [Concomitant]
     Active Substance: RISANKIZUMAB-RZAA
  25. PREDNISONE [Concomitant]
     Active Substance: PREDNISONE
  26. PROMETHAZINE [Concomitant]
     Active Substance: PROMETHAZINE HYDROCHLORIDE
  27. VENLAFAXINE HYDROCHLORIDE [Concomitant]
     Active Substance: VENLAFAXINE HYDROCHLORIDE
  28. IBUPROFEN [Interacting]
     Active Substance: IBUPROFEN
  29. NURTEC ODT [Concomitant]
     Active Substance: RIMEGEPANT SULFATE
  30. LINZESS [Concomitant]
     Active Substance: LINACLOTIDE
  31. FLUOCINOLONE ACETONIDE [Concomitant]
     Active Substance: FLUOCINOLONE ACETONIDE
  32. MOTEGRITY [Concomitant]
     Active Substance: PRUCALOPRIDE SUCCINATE
  33. BETAMETH DIPROPIONATE [Concomitant]
  34. TAMSULOSIN [Concomitant]
     Active Substance: TAMSULOSIN
  35. DULOXETINE [Concomitant]
     Active Substance: DULOXETINE
  36. TOPIRAMATE [Concomitant]
     Active Substance: TOPIRAMATE
  37. RIZATRIPTAN [Concomitant]
     Active Substance: RIZATRIPTAN
  38. TOPIRAMATE [Concomitant]
     Active Substance: TOPIRAMATE

REACTIONS (5)
  - Chronic sinusitis [Not Recovered/Not Resolved]
  - Condition aggravated [Not Recovered/Not Resolved]
  - Product use in unapproved indication [Unknown]
  - Accidental exposure to product [Unknown]
  - Exposure via skin contact [Unknown]

NARRATIVE: CASE EVENT DATE: 20240717
